FAERS Safety Report 6749716-2 (Version None)
Quarter: 2010Q2

REPORT INFORMATION
  Report Type: 
  Country: None (occurrence: None)
  Receive Date: 20100601
  Receipt Date: 20100528
  Transmission Date: 20101027
  Serious: Yes (Death, Hospitalization)
  Sender: FDA-Public Use
  Company Number: US-BAYER-200919166NA

PATIENT
  Age: 76 Year
  Sex: Male
  Weight: 88 kg

DRUGS (3)
  1. SORAFENIB [Suspect]
     Indication: MULTIPLE MYELOMA
     Dosage: TOTAL DAILY DOSE: 400 MG  UNIT DOSE: 200 MG
     Route: 048
     Dates: start: 20090331, end: 20090421
  2. BORTEZOMIB [Suspect]
     Indication: MULTIPLE MYELOMA
     Dosage: (CYCLE 1)  DAYS 1,8,15 AND 22
     Dates: start: 20090331, end: 20090421
  3. SOTALOL HCL [Concomitant]
     Dosage: TAKING ONLY HALF OF PRESCRIBED DOSE

REACTIONS (2)
  - PNEUMONIA [None]
  - RESPIRATORY FAILURE [None]
